FAERS Safety Report 20290981 (Version 1)
Quarter: 2022Q1

REPORT INFORMATION
  Report Type: Spontaneous
  Country: DE (occurrence: DE)
  Receive Date: 20220104
  Receipt Date: 20220104
  Transmission Date: 20220423
  Serious: Yes (Hospitalization)
  Sender: FDA-Public Use
  Company Number: DE-ADRED-06590-05

PATIENT
  Age: 64 Year
  Sex: Male

DRUGS (10)
  1. GEMCITABINE [Suspect]
     Active Substance: GEMCITABINE
     Indication: Product used for unknown indication
     Dosage: 2400 MILLIGRAM (2400 MG, NACH SCHEMA, INJEKTIONS-/INFUSIONSLOSUNG)
     Route: 042
  2. LIPEGFILGRASTIM [Suspect]
     Active Substance: LIPEGFILGRASTIM
     Indication: Product used for unknown indication
     Dosage: UNK (NACH SCHEMA)
  3. CARBOPLATIN [Suspect]
     Active Substance: CARBOPLATIN
     Indication: Product used for unknown indication
     Dosage: UNK (NACH SCHEMA, INJEKTIONS-/INFUSIONSLOSUNG)
     Route: 042
  4. AMDINOCILLIN PIVOXIL [Concomitant]
     Active Substance: AMDINOCILLIN PIVOXIL
     Dosage: 200 MILLIGRAM, TID (200 MG, 1-1-1-0)
     Route: 048
  5. ASPIRIN [Concomitant]
     Active Substance: ASPIRIN
     Dosage: 100 MILLIGRAM, QD (100 MG, 1-0-0-0, TABLETTEN)
     Route: 048
  6. POLYETHYLENE GLYCOL\POTASSIUM CHLORIDE\SODIUM BICARBONATE\SODIUM CHLOR [Concomitant]
     Active Substance: POLYETHYLENE GLYCOL\POTASSIUM CHLORIDE\SODIUM BICARBONATE\SODIUM CHLORIDE
     Dosage: UNK (13.125|0.047|0.179|0.351 G, 1-1-1-0, PULVER ZUR HERSTELLUNG EINER LOSUNG)
     Route: 048
  7. INSULIN LISPRO [Concomitant]
     Active Substance: INSULIN LISPRO
     Dosage: 1 INTERNATIONAL UNIT (1 IE, NACH BZ, INJEKTIONS-/INFUSIONSLOSUNG)
     Route: 058
  8. PANTOPRAZOLE SODIUM [Concomitant]
     Active Substance: PANTOPRAZOLE SODIUM
     Dosage: 40 MILLIGRAM, QD (40 MG, 1-0-0-0, RETARD-TABLETTEN)
     Route: 048
  9. DALTEPARIN [Concomitant]
     Active Substance: DALTEPARIN
     Dosage: 5000 INTERNATIONAL UNIT, QD (5000 IE, 0-0-1-0, FERTIGSPRITZEN)
     Route: 058
  10. CALCITRIOL [Concomitant]
     Active Substance: CALCITRIOL
     Dosage: 0.25 MICROGRAM, QD (0.25 ?G, 2-0-0-0, KAPSELN)
     Route: 048

REACTIONS (9)
  - Muscular weakness [Unknown]
  - Chills [Unknown]
  - Headache [Unknown]
  - Decreased appetite [Unknown]
  - Dizziness [Unknown]
  - Diarrhoea [Unknown]
  - Vomiting [Unknown]
  - General physical health deterioration [Unknown]
  - Abdominal pain [Unknown]
